FAERS Safety Report 5225537-7 (Version None)
Quarter: 2007Q1

REPORT INFORMATION
  Report Type: 
  Country: None (occurrence: None)
  Receive Date: 20070131
  Receipt Date: 20070119
  Transmission Date: 20070707
  Serious: Yes (Other)
  Sender: FDA-Public Use
  Company Number: US-PFIZER INC-2007006146

PATIENT
  Sex: Male
  Weight: 129.3 kg

DRUGS (8)
  1. LYRICA [Suspect]
     Indication: NEUROPATHY
  2. LYRICA [Suspect]
     Indication: NERVE INJURY
  3. INSULIN [Concomitant]
  4. COREG [Concomitant]
  5. ALLOPURINOL SODIUM [Concomitant]
  6. DIURETICS [Concomitant]
  7. INSPRA [Concomitant]
  8. ENALAPRIL MALEATE [Concomitant]

REACTIONS (1)
  - PARAESTHESIA [None]
